FAERS Safety Report 8749612 (Version 2)
Quarter: 2012Q4

REPORT INFORMATION
  Report Type: 
  Country: US (occurrence: US)
  Receive Date: 20120827
  Receipt Date: 20120911
  Transmission Date: 20130627
  Serious: Yes (Death, Life-Threatening, Hospitalization)
  Sender: FDA-Public Use
  Company Number: US-JNJFOC-20120810457

PATIENT
  Age: 60 None
  Sex: Female
  Weight: 72.58 kg

DRUGS (46)
  1. DURAGESIC [Suspect]
     Indication: PAIN
     Dosage: about 3 or 4 years ago
     Route: 062
     Dates: end: 20120520
  2. DURAGESIC [Suspect]
     Indication: PAIN
     Dosage: 2006-2007
     Route: 062
     Dates: start: 200607
  3. EXALGO ER [Suspect]
     Indication: PAIN
     Route: 048
     Dates: start: 201111, end: 201205
  4. EXALGO ER [Suspect]
     Indication: PAIN
     Route: 048
  5. NUCYNTA ER [Concomitant]
     Indication: PAIN
     Route: 065
     Dates: end: 201205
  6. COUMADIN [Concomitant]
     Indication: HEART VALVE REPLACEMENT
     Dosage: monday, wednesday, friday and sunday
     Route: 048
  7. COUMADIN [Concomitant]
     Indication: HEART VALVE REPLACEMENT
     Route: 048
     Dates: start: 2000, end: 201205
  8. COUMADIN [Concomitant]
     Indication: HEART VALVE REPLACEMENT
     Dosage: tuesday, thursday and saturday
     Route: 048
  9. ZETIA [Concomitant]
     Indication: CARDIAC DISORDER
     Route: 048
     Dates: end: 201205
  10. ZETIA [Concomitant]
     Indication: CARDIAC DISORDER
     Route: 048
  11. FIORICET [Concomitant]
     Indication: HEADACHE
     Dosage: once daily as necessary
     Route: 065
  12. FIORICET [Concomitant]
     Indication: HEADACHE
     Route: 065
     Dates: start: 201111, end: 201205
  13. FIORICET [Concomitant]
     Indication: PAIN
     Dosage: once daily as necessary
     Route: 065
  14. FIORICET [Concomitant]
     Indication: PAIN
     Route: 065
     Dates: start: 201111, end: 201205
  15. ASTEPRO NASAL SPRAY [Concomitant]
     Dosage: 0.15 %, 2 sprays
     Route: 065
  16. B COMPLEX WITH VITAMIN C [Concomitant]
     Dosage: once a day with meal
     Route: 065
  17. CALCIUM AND VITAMIN D [Concomitant]
     Dosage: with meal
     Route: 065
  18. MINERALS, NOS [Concomitant]
     Dosage: with meal
     Route: 065
  19. CRESTOR [Concomitant]
     Route: 065
  20. CYMBALTA [Concomitant]
     Route: 065
  21. DULCOLAX [Concomitant]
     Route: 065
  22. DULCOLAX SUPPOSITORY [Concomitant]
     Route: 065
  23. FLEXERIL [Concomitant]
     Indication: MUSCLE SPASMS
     Route: 065
  24. FLONASE [Concomitant]
     Route: 065
  25. FLUTICASONE PROPIONATE [Concomitant]
     Dosage: 1-2 sprays
     Route: 045
  26. FOLIC ACID [Concomitant]
     Route: 065
  27. ALOE [Concomitant]
     Dosage: with meal
     Route: 065
  28. KCL [Concomitant]
     Dosage: with meal
     Route: 065
  29. LASIX [Concomitant]
     Route: 065
  30. LEVOTHYROXINE [Concomitant]
     Route: 065
  31. LOVENOX [Concomitant]
     Route: 065
  32. LUNESTA [Concomitant]
     Route: 065
  33. METOPROLOL TARTRATE [Concomitant]
     Route: 065
  34. MAALOX [Concomitant]
     Indication: DYSPEPSIA
     Route: 065
  35. METHYLSULFONYLMETHANE [Concomitant]
     Dosage: with meal
     Route: 065
  36. PHENERGAN [Concomitant]
     Dosage: as necessary
     Route: 065
  37. PROTONIX [Concomitant]
     Route: 065
  38. RAMIPRIL [Concomitant]
     Route: 065
  39. SENNA [Concomitant]
     Route: 065
  40. SINGULAIR [Concomitant]
     Route: 065
  41. AN UNKNOWN MEDICATION [Concomitant]
     Route: 065
  42. AN UNKNOWN MEDICATION [Concomitant]
     Dosage: with meal
     Route: 065
  43. AN UNKNOWN MEDICATION [Concomitant]
     Route: 065
  44. ZEGERID [Concomitant]
     Route: 065
  45. FENTANYL [Concomitant]
     Route: 065
  46. ALLEGRA [Concomitant]
     Route: 065

REACTIONS (9)
  - Respiratory failure [Fatal]
  - Cardiac failure [Fatal]
  - Grand mal convulsion [Fatal]
  - Hypoxic-ischaemic encephalopathy [Fatal]
  - Withdrawal syndrome [Unknown]
  - Unresponsive to stimuli [Unknown]
  - Drug dose omission [Not Recovered/Not Resolved]
  - Migraine [Recovered/Resolved]
  - Pain [Recovered/Resolved]
